FAERS Safety Report 4381460-1 (Version None)
Quarter: 2004Q2

REPORT INFORMATION
  Report Type: 
  Country: None (occurrence: None)
  Receive Date: 20040616
  Receipt Date: 20040608
  Transmission Date: 20050107
  Serious: Yes (Hospitalization)
  Sender: FDA-Public Use
  Company Number: 2004038400

PATIENT
  Age: 60 Year
  Sex: Female
  Weight: 109.7705 kg

DRUGS (1)
  1. LIPITOR [Suspect]
     Indication: BLOOD CHOLESTEROL INCREASED
     Dosage: 40 MG (40 MG, 1 IN 1 D), ORAL
     Route: 048
     Dates: start: 20030918

REACTIONS (2)
  - APPENDICITIS [None]
  - BLOOD CREATINE PHOSPHOKINASE INCREASED [None]
